FAERS Safety Report 24233061 (Version 5)
Quarter: 2025Q4

REPORT INFORMATION
  Report Type: Report from Study
  Country: TH (occurrence: TH)
  Receive Date: 20240821
  Receipt Date: 20251016
  Transmission Date: 20260118
  Serious: Yes (Hospitalization, Other)
  Sender: NOVARTIS
  Company Number: TH-002147023-NVSC2023TH255041

PATIENT
  Sex: Female
  Weight: 50.2 kg

DRUGS (10)
  1. KISQALI [Suspect]
     Active Substance: RIBOCICLIB SUCCINATE
     Indication: Breast cancer metastatic
     Dosage: 200 MG (3 TABLETS) (IN THE MORNING)
     Route: 048
  2. KISQALI [Suspect]
     Active Substance: RIBOCICLIB SUCCINATE
     Dosage: 200 MG (2 TABLETS) (IN THE MORNING)
     Route: 048
     Dates: end: 202310
  3. KISQALI [Suspect]
     Active Substance: RIBOCICLIB SUCCINATE
     Dosage: 200 MG (2 TABLETS) (IN THE MORNING)
     Route: 048
     Dates: start: 20231101
  4. KISQALI [Suspect]
     Active Substance: RIBOCICLIB SUCCINATE
     Dosage: 200 MG, UNKNOWN
     Route: 048
  5. KISQALI [Suspect]
     Active Substance: RIBOCICLIB SUCCINATE
     Dosage: 1 DOSAGE FORM, QD (IN MORNING)
     Route: 048
  6. KISQALI [Suspect]
     Active Substance: RIBOCICLIB SUCCINATE
     Dosage: UNK
     Route: 048
     Dates: start: 20240919
  7. ERGOCALCIFEROL [Concomitant]
     Active Substance: ERGOCALCIFEROL
     Indication: Product used for unknown indication
     Dosage: 1 DOSAGE FORM, QW (20000 UNITS) (AFTER BREAKFAST), QUANTITY 13 CAPSULE
     Route: 065
  8. CALCIUM CARBONATE [Concomitant]
     Active Substance: CALCIUM CARBONATE
     Indication: Product used for unknown indication
     Dosage: 1000 MG, QD (AFTER BREAKFAST), QUANTITY 90 TABLETS
     Route: 065
  9. DOMPERIDONE [Concomitant]
     Active Substance: DOMPERIDONE
     Indication: Product used for unknown indication
     Dosage: 10 MG, TID (BEFORE MEALS)
     Route: 065
  10. LETROZOLE [Concomitant]
     Active Substance: LETROZOLE
     Indication: Product used for unknown indication
     Dosage: 2.5 MG, QD, AFTER BREAKFAST, QUANTITY 90 TABLETS
     Route: 048

REACTIONS (8)
  - Urinary tract infection [Unknown]
  - Renal function test abnormal [Unknown]
  - Infection [Unknown]
  - Hepatic neoplasm [Unknown]
  - Weight increased [Unknown]
  - White blood cell count decreased [Unknown]
  - Weight decreased [Unknown]
  - Renal disorder [Unknown]
